FAERS Safety Report 22185981 (Version 3)
Quarter: 2023Q2

REPORT INFORMATION
  Report Type: Spontaneous
  Country: CN (occurrence: CN)
  Receive Date: 20230407
  Receipt Date: 20230428
  Transmission Date: 20230721
  Serious: Yes (Hospitalization)
  Sender: FDA-Public Use
  Company Number: CN-ELI_LILLY_AND_COMPANY-CN202303016838

PATIENT
  Age: 71 Year
  Sex: Female
  Weight: 62.5 kg

DRUGS (5)
  1. HUMALOG MIX50/50 [Suspect]
     Active Substance: INSULIN LISPRO
     Indication: Diabetes mellitus
     Dosage: 12 U, BID (IN MORNING, AND IN EVENING)
     Route: 058
     Dates: start: 20230215
  2. HUMALOG MIX50/50 [Suspect]
     Active Substance: INSULIN LISPRO
     Indication: Diabetes mellitus
     Dosage: 12 U, BID (IN MORNING, AND IN EVENING)
     Route: 058
     Dates: start: 20230215
  3. HUMALOG MIX50/50 [Suspect]
     Active Substance: INSULIN LISPRO
     Dosage: 12 U, BID (IN MORNING, AND IN EVENING)
     Route: 058
  4. HUMALOG MIX50/50 [Suspect]
     Active Substance: INSULIN LISPRO
     Dosage: 12 U, BID (IN MORNING, AND IN EVENING)
     Route: 058
  5. METFORMIN [Concomitant]
     Active Substance: METFORMIN HYDROCHLORIDE
     Indication: Product used for unknown indication

REACTIONS (3)
  - Blood glucose increased [Not Recovered/Not Resolved]
  - Visual impairment [Unknown]
  - Product dose omission issue [Unknown]
